FAERS Safety Report 25983835 (Version 1)
Quarter: 2025Q4

REPORT INFORMATION
  Report Type: Spontaneous
  Country: US (occurrence: None)
  Receive Date: 20251030
  Receipt Date: 20251030
  Transmission Date: 20260118
  Serious: Yes (Hospitalization)
  Sender: FDA-CTU
  Company Number: None

PATIENT
  Age: 33 Year
  Sex: Female

DRUGS (12)
  1. SPRAVATO [Suspect]
     Active Substance: ESKETAMINE
     Indication: Major depression
     Dosage: ?ADMINISTER 84MG VIA INTRANASAL ROUTE USING THREE, 28-MG DEVICES, TWICE WEEKLY. WAIT FIVE  MINUTES BETWEEN DEVICES.?
     Route: 045
     Dates: start: 20250617
  2. SPRAVATO [Suspect]
     Active Substance: ESKETAMINE
     Indication: Psychotic disorder
  3. BUPROPION HYDROCHLORIDE [Concomitant]
     Active Substance: BUPROPION HYDROCHLORIDE
  4. BUSPIRONE  TAB 15MG [Concomitant]
  5. FETZIMA  CAP 20MG [Concomitant]
  6. GABAPENTIN [Concomitant]
     Active Substance: GABAPENTIN
  7. GABAPENTIN [Concomitant]
     Active Substance: GABAPENTIN
  8. LAMOTRIGINE TAB 25MG [Concomitant]
  9. OMEPRAZOLE  CAP 40MG [Concomitant]
  10. RISPERIDONE [Concomitant]
     Active Substance: RISPERIDONE
  11. SPRAVATO 56MG DOSE [Concomitant]
  12. VENLAFAXINE TAB 37.5 ER [Concomitant]

REACTIONS (4)
  - Anxiety [None]
  - Dissociation [None]
  - Brain fog [None]
  - Suicidal ideation [None]

NARRATIVE: CASE EVENT DATE: 20250930
